FAERS Safety Report 20572755 (Version 2)
Quarter: 2022Q1

REPORT INFORMATION
  Report Type: Report from Study
  Country: US (occurrence: US)
  Receive Date: 20220309
  Receipt Date: 20220318
  Transmission Date: 20220423
  Serious: Yes (Other)
  Sender: FDA-Public Use
  Company Number: US-GILEAD-2022-0572775

PATIENT
  Sex: Female

DRUGS (5)
  1. AMBRISENTAN [Suspect]
     Active Substance: AMBRISENTAN
     Indication: Pulmonary arterial hypertension
     Dosage: 10 MG, QD
     Route: 065
     Dates: start: 20191120
  2. TYVASO [Concomitant]
     Active Substance: TREPROSTINIL
  3. ELIQUIS [Concomitant]
     Active Substance: APIXABAN
  4. ADEMPAS [Concomitant]
     Active Substance: RIOCIGUAT
  5. ORENITRAM [Concomitant]
     Active Substance: TREPROSTINIL

REACTIONS (8)
  - Loss of consciousness [Unknown]
  - Renal failure [Unknown]
  - Hepatic steatosis [Unknown]
  - Blood pressure fluctuation [Unknown]
  - Migraine [Recovered/Resolved]
  - Dizziness [Unknown]
  - Face injury [Unknown]
  - Tooth injury [Unknown]
